FAERS Safety Report 21283464 (Version 1)
Quarter: 2022Q3

REPORT INFORMATION
  Report Type: Report from Study
  Country: ES (occurrence: ES)
  Receive Date: 20220901
  Receipt Date: 20220901
  Transmission Date: 20221027
  Serious: Yes (Hospitalization)
  Sender: FDA-Public Use
  Company Number: ES-LUNDBECK-DKLU3050475

PATIENT
  Age: 73 Year
  Sex: Male
  Weight: 75 kg

DRUGS (6)
  1. VORTIOXETINE [Suspect]
     Active Substance: VORTIOXETINE
     Indication: Parkinson^s disease
     Dosage: 5 MILLIGRAM, QD
     Route: 065
     Dates: start: 20210604, end: 20210614
  2. VORTIOXETINE [Suspect]
     Active Substance: VORTIOXETINE
     Indication: Depression
  3. CARBIDOPA\LEVODOPA [Concomitant]
     Active Substance: CARBIDOPA\LEVODOPA
     Indication: Parkinson^s disease
     Dosage: 1 DOSAGE FORM, Q8HR
     Route: 048
     Dates: start: 20191212
  4. AZILECT [Concomitant]
     Active Substance: RASAGILINE MESYLATE
     Indication: Parkinson^s disease
     Dosage: 1 DOSAGE FORM, QD
     Route: 048
     Dates: start: 20180419, end: 20201216
  5. XADAGO [Concomitant]
     Active Substance: SAFINAMIDE MESYLATE
     Indication: Parkinson^s disease
     Dosage: 1 DOSAGE FORM, QD
     Route: 048
     Dates: start: 20201230
  6. REQUIP PROLIB [Concomitant]
     Indication: Parkinson^s disease
     Dosage: 4 MILLIGRAM, QD
     Route: 048
     Dates: start: 20200510

REACTIONS (4)
  - Weight decreased [Recovered/Resolved]
  - Dehydration [Recovered/Resolved]
  - Vomiting [Recovered/Resolved]
  - Nausea [Recovered/Resolved]

NARRATIVE: CASE EVENT DATE: 20210605
